FAERS Safety Report 5336398-X (Version None)
Quarter: 2007Q2

REPORT INFORMATION
  Report Type: 
  Country: None (occurrence: None)
  Receive Date: 20070523
  Receipt Date: 20070511
  Transmission Date: 20071010
  Serious: Yes (Death)
  Sender: FDA-Public Use
  Company Number: S07-USA-01228-01

PATIENT
  Age: 33 Year
  Sex: Male
  Weight: 92.5338 kg

DRUGS (3)
  1. CELEXA [Suspect]
     Indication: ANXIETY
     Dosage: 20 MG QD PO
     Route: 048
     Dates: start: 20070209, end: 20070220
  2. CELEXA [Suspect]
     Indication: DEPRESSION
     Dosage: 20 MG QD PO
     Route: 048
     Dates: start: 20070209, end: 20070220
  3. KLONOPIN [Suspect]
     Indication: ANXIETY
     Dosage: 0.5 MG BID
     Dates: start: 20070207, end: 20070220

REACTIONS (7)
  - ANXIETY [None]
  - COMPLETED SUICIDE [None]
  - CRYING [None]
  - DRUG SCREEN POSITIVE [None]
  - GUN SHOT WOUND [None]
  - MARITAL PROBLEM [None]
  - SOCIAL AVOIDANT BEHAVIOUR [None]
